FAERS Safety Report 9073181 (Version 1)
Quarter: 2013Q1

REPORT INFORMATION
  Report Type: Report from Study
  Country: US (occurrence: US)
  Receive Date: 20130129
  Receipt Date: 20130129
  Transmission Date: 20140127
  Serious: No
  Sender: FDA-Public Use
  Company Number: US-ABBOTT-12P-163-0920422-00

PATIENT
  Age: 37 Year
  Sex: Male

DRUGS (8)
  1. HUMIRA 40 MG/0.8 ML PEN [Suspect]
     Indication: PSORIATIC ARTHROPATHY
     Dates: start: 20120315
  2. LORTAB [Concomitant]
     Indication: PAIN
     Dosage: PRN
  3. TACLONEX [Concomitant]
     Indication: PSORIASIS
  4. CORTISONE [Concomitant]
     Indication: PSORIASIS
  5. UNKNOWN ANTI-ITCH CREAM [Concomitant]
     Indication: PSORIASIS
  6. DIAZEPAM [Concomitant]
     Indication: MUSCLE SPASMS
     Route: 048
  7. DIAZEPAM [Concomitant]
     Indication: STRESS
  8. DIAZEPAM [Concomitant]
     Indication: ANXIETY

REACTIONS (2)
  - Renal pain [Not Recovered/Not Resolved]
  - Renal pain [Not Recovered/Not Resolved]
